FAERS Safety Report 9205740 (Version 1)
Quarter: 2013Q2

REPORT INFORMATION
  Report Type: Spontaneous
  Country: AU (occurrence: None)
  Receive Date: 20130401
  Receipt Date: 20130401
  Transmission Date: 20140414
  Serious: Yes (Hospitalization)
  Sender: FDA-Public Use
  Company Number: 2013-011587

PATIENT
  Age: 49 Year
  Sex: Male
  Weight: 73.5 kg

DRUGS (6)
  1. BAY86-5321, VEGF TRAP-EYE FOR DME (AFLI BERCEPT) SOLUTION FOR INJECTION [Suspect]
     Indication: DIABETIC RETINAL OEDEMA
     Route: 031
     Dates: start: 20111115
  2. LANTUS (INSULIN GLARGINE) [Concomitant]
  3. NOVORAPID (INSULIN ASPART) [Concomitant]
  4. LUCENTIS (RANIBIZUMAB) [Concomitant]
  5. ENALAPRIL MALEATE W/LERCANIDIPIN HCL (ENALAPRIL MALEATE W/ LERCANIDIPIN HCL) [Concomitant]
  6. ALPHA-ADRENORECEPTOR ANTAGONISTS (ALPHA-ADRENORECEPTOR ANTAGONISTS) [Concomitant]

REACTIONS (4)
  - Pilonidal cyst [None]
  - Bacterial test positive [None]
  - Escherichia test positive [None]
  - Infected cyst [None]
